FAERS Safety Report 17017631 (Version 1)
Quarter: 2019Q4

REPORT INFORMATION
  Report Type: Spontaneous
  Country: IN (occurrence: IN)
  Receive Date: 20191111
  Receipt Date: 20191111
  Transmission Date: 20200122
  Serious: Yes (Other)
  Sender: FDA-Public Use
  Company Number: IN-GLAXOSMITHKLINE-IN2019GSK202147

PATIENT
  Age: 46 Year
  Sex: Female

DRUGS (1)
  1. RANITIDINE. [Suspect]
     Active Substance: RANITIDINE
     Indication: DYSPEPSIA
     Dosage: 300 MG, 1D

REACTIONS (7)
  - Nipple pain [Unknown]
  - Breast pain [Unknown]
  - Galactorrhoea [Unknown]
  - Hyperprolactinaemia [Unknown]
  - Breast engorgement [Unknown]
  - Breast tenderness [Unknown]
  - Breast discharge [Recovered/Resolved]
